FAERS Safety Report 19884504 (Version 2)
Quarter: 2021Q3

REPORT INFORMATION
  Report Type: Spontaneous
  Country: ES (occurrence: ES)
  Receive Date: 20210927
  Receipt Date: 20210930
  Transmission Date: 20211014
  Serious: Yes (Other)
  Sender: FDA-Public Use
  Company Number: ES-AUROBINDO-AUR-APL-2021-039904

PATIENT
  Age: 82 Year
  Sex: Female

DRUGS (2)
  1. ENTECAVIR. [Suspect]
     Active Substance: ENTECAVIR
     Indication: BENCE JONES PROTEINURIA
     Dosage: 10 MILLIGRAM
     Route: 065
  2. LENALIDOMIDE [Interacting]
     Active Substance: LENALIDOMIDE
     Indication: PRODUCT USED FOR UNKNOWN INDICATION
     Dosage: 10 MILLIGRAM
     Route: 065

REACTIONS (6)
  - Intentional product use issue [Unknown]
  - Haematotoxicity [Unknown]
  - Drug interaction [Unknown]
  - Hypothyroidism [Unknown]
  - Congenital hypothyroidism [Unknown]
  - Condition aggravated [Unknown]
